FAERS Safety Report 4900613-4 (Version None)
Quarter: 2006Q1

REPORT INFORMATION
  Report Type: 
  Country: None (occurrence: None)
  Receive Date: 20060201
  Receipt Date: 20060116
  Transmission Date: 20060701
  Serious: No
  Sender: FDA-Public Use
  Company Number: US200601001459

PATIENT
  Sex: Male

DRUGS (2)
  1. FORTEO [Suspect]
     Indication: HIP SURGERY
     Dates: start: 20040401
  2. FORTEO [Concomitant]

REACTIONS (1)
  - NO ADVERSE DRUG EFFECT [None]
